FAERS Safety Report 4454754-9 (Version None)
Quarter: 2004Q3

REPORT INFORMATION
  Report Type: 
  Country: None (occurrence: None)
  Receive Date: 20040920
  Receipt Date: 20040920
  Transmission Date: 20050211
  Serious: Yes (Hospitalization)
  Sender: FDA-Public Use
  Company Number: None

PATIENT
  Age: 50 Year
  Sex: Male
  Weight: 74.8435 kg

DRUGS (8)
  1. LITHIUM  300 MG CAPSULE [Suspect]
     Indication: BIPOLAR DISORDER
     Dosage: SEE IMAGE
     Dates: start: 20040430, end: 20040730
  2. ASPIRIN [Concomitant]
  3. CYCLOBENZAPRINE HCL [Concomitant]
  4. OMEPRAZOLE [Concomitant]
  5. PROPRANOLOL [Concomitant]
  6. CITALOPRAM [Concomitant]
  7. TRAZODONE HCL [Concomitant]
  8. NAPROSYN [Concomitant]

REACTIONS (6)
  - ALCOHOL USE [None]
  - ATAXIA [None]
  - DISEASE RECURRENCE [None]
  - DIZZINESS [None]
  - DRUG LEVEL ABOVE THERAPEUTIC [None]
  - REFUSAL OF TREATMENT BY PATIENT [None]
